FAERS Safety Report 8343683-6 (Version None)
Quarter: 2012Q2

REPORT INFORMATION
  Report Type: 
  Country: None (occurrence: None)
  Receive Date: 20120508
  Receipt Date: 20120502
  Transmission Date: 20120825
  Serious: Yes (Other)
  Sender: FDA-Public Use
  Company Number: US-B.I. PHARMACEUTICALS,INC./RIDGEFIELD-2012-EU-02474GD

PATIENT
  Age: 64 Year
  Sex: Male

DRUGS (6)
  1. CARBIDOPA AND LEVODOPA [Suspect]
     Indication: PARKINSON'S DISEASE
     Dosage: CARBIDOPA/LEVODOPA 25/100 MG 2 TIMES DAILY
  2. CLONAZEPAM [Concomitant]
     Indication: ANXIETY
  3. CARBIDOPA/LEVODOPA/ENTACAPONE [Suspect]
     Indication: PARKINSON'S DISEASE
     Dosage: CARBIDOPA/LEVODOPA/ENTACAPONE 31.25/125/200 MG EVERY 4 HOURS (4 TIMES DAILY)
  4. ASPIRIN [Concomitant]
     Dosage: 81 MG
  5. PRAMIPEXOLE DIHYDROCHLORIDE [Suspect]
     Indication: PARKINSON'S DISEASE
     Dosage: 4 MG
  6. LANSOPRAZOLE [Concomitant]
     Dosage: 30 MG

REACTIONS (2)
  - DYSKINESIA [None]
  - ON AND OFF PHENOMENON [None]
